FAERS Safety Report 4938741-X (Version None)
Quarter: 2006Q1

REPORT INFORMATION
  Report Type: 
  Country: None (occurrence: None)
  Receive Date: 20060309
  Receipt Date: 20060210
  Transmission Date: 20060701
  Serious: Yes (Hospitalization)
  Sender: FDA-Public Use
  Company Number: JP-BOEHRINGER INGELHEIM PHARMACEUTICALS, INC.-2006-BP-01627NB

PATIENT
  Sex: Male
  Weight: 61.5 kg

DRUGS (9)
  1. MICARDIS [Suspect]
     Indication: HYPERTENSION
     Route: 048
     Dates: start: 20050928, end: 20060116
  2. RENIVEZE [Suspect]
     Indication: HYPERTENSION
     Route: 048
     Dates: start: 20050401, end: 20060116
  3. AMLODIN [Concomitant]
     Indication: HYPERTENSION
     Route: 048
     Dates: start: 20050401
  4. HOKUNALIN: TAPE (TULOBUTEROL) [Concomitant]
     Indication: ASTHMA
     Route: 062
     Dates: start: 20050401
  5. THEOLONG [Concomitant]
     Indication: ASTHMA
     Route: 048
     Dates: start: 20050401
  6. ZANTAC [Concomitant]
     Route: 048
     Dates: start: 20050401
  7. DAONIL [Concomitant]
     Indication: DIABETES MELLITUS
     Route: 048
     Dates: start: 20050401
  8. DEPAS [Concomitant]
     Route: 048
     Dates: start: 20050401
  9. SELBEX [Concomitant]
     Route: 048
     Dates: start: 20050401

REACTIONS (1)
  - RENAL FAILURE [None]
